FAERS Safety Report 10301014 (Version 3)
Quarter: 2014Q4

REPORT INFORMATION
  Report Type: Spontaneous
  Country: IT (occurrence: IT)
  Receive Date: 20140714
  Receipt Date: 20141117
  Transmission Date: 20150528
  Serious: Yes (Hospitalization, Other)
  Sender: FDA-Public Use
  Company Number: IT-009507513-1407ITA003444

PATIENT
  Age: 75 Year
  Sex: Male

DRUGS (7)
  1. CONTRAMAL [Concomitant]
     Active Substance: TRAMADOL HYDROCHLORIDE
     Dosage: 100 MG, UNK
     Route: 048
  2. ALMARYTM [Concomitant]
     Active Substance: FLECAINIDE ACETATE
     Dosage: 100 MG, UNK
     Route: 048
  3. CARDIRENE [Concomitant]
     Active Substance: ASPIRIN DL-LYSINE
     Dosage: 75 MG, UNK
     Route: 048
  4. AZILECT [Concomitant]
     Active Substance: RASAGILINE MESYLATE
     Route: 048
  5. SINEMET [Concomitant]
     Active Substance: CARBIDOPA\LEVODOPA
     Dosage: 100 MG+25 MG
     Route: 048
  6. VASORETIC 20 MG + 12,5 MG COMPRESSE [Concomitant]
     Active Substance: ENALAPRIL MALEATE\HYDROCHLOROTHIAZIDE
     Dosage: 20MG+12.5MG
     Route: 048
  7. INTERFERON ALFA-2B [Suspect]
     Active Substance: INTERFERON ALFA-2B
     Dosage: UNK
     Dates: start: 20140328, end: 2014

REACTIONS (5)
  - Speech disorder [Recovered/Resolved]
  - Seizure [Recovered/Resolved]
  - Circadian rhythm sleep disorder [Recovered/Resolved]
  - Confusional state [Recovered/Resolved]
  - Nervousness [Recovered/Resolved]

NARRATIVE: CASE EVENT DATE: 20140418
